FAERS Safety Report 10437370 (Version 3)
Quarter: 2014Q4

REPORT INFORMATION
  Report Type: Spontaneous
  Country: US (occurrence: US)
  Receive Date: 20140908
  Receipt Date: 20141205
  Transmission Date: 20150528
  Serious: No
  Sender: FDA-Public Use
  Company Number: US-BRISTOL-MYERS SQUIBB COMPANY-20364980

PATIENT
  Age: 24 Year
  Sex: Male

DRUGS (4)
  1. VICKS NYQUIL [Concomitant]
     Active Substance: ACETAMINOPHEN\DEXTROMETHORPHAN HYDROBROMIDE\DOXYLAMINE SUCCINATE
     Route: 065
  2. LITHIUM [Suspect]
     Active Substance: LITHIUM CARBONATE
     Route: 065
     Dates: start: 2009
  3. VICKS DAYQUIL [Concomitant]
     Active Substance: DEXTROMETHORPHAN HYDROBROMIDE\GUAIFENESIN
     Route: 065
  4. ABILIFY [Suspect]
     Active Substance: ARIPIPRAZOLE
     Dosage: LAST DOSE-10 MG 10 DAYS AGO FRM F/UP DATE 17JUL2014.?SEP2013,17FEB2014-5MG?5,10,2MG-2.5Y;2TO1MG
     Route: 065

REACTIONS (9)
  - Confusional state [Unknown]
  - Night sweats [Unknown]
  - Anxiety [Unknown]
  - Hyperhidrosis [Unknown]
  - Tremor [Unknown]
  - Anger [Unknown]
  - Feeling abnormal [Unknown]
  - Hallucination, visual [Unknown]
  - Akathisia [Unknown]
